FAERS Safety Report 10166748 (Version 2)
Quarter: 2014Q2

REPORT INFORMATION
  Report Type: Spontaneous
  Country: US (occurrence: US)
  Receive Date: 20140512
  Receipt Date: 20140604
  Transmission Date: 20141212
  Serious: Yes (Other)
  Sender: FDA-Public Use
  Company Number: US-SA-2014SA057776

PATIENT
  Age: 54 Year
  Sex: Male

DRUGS (4)
  1. LANTUS [Suspect]
     Indication: DIABETES MELLITUS
     Route: 065
  2. LANTUS [Suspect]
     Indication: DIABETES MELLITUS
     Dosage: DOSE:45 UNIT(S)
     Route: 065
     Dates: start: 201404
  3. LANTUS [Suspect]
     Indication: DIABETES MELLITUS
     Route: 065
  4. HUMALOG [Concomitant]

REACTIONS (2)
  - Blindness [Not Recovered/Not Resolved]
  - Blood glucose decreased [Not Recovered/Not Resolved]
